FAERS Safety Report 18326044 (Version 1)
Quarter: 2020Q3

REPORT INFORMATION
  Report Type: Spontaneous
  Country: AU (occurrence: AU)
  Receive Date: 20200929
  Receipt Date: 20200929
  Transmission Date: 20201103
  Serious: Yes (Other)
  Sender: FDA-Public Use
  Company Number: AU-TEIKOKU PHARMA USA-TPU2020-00786

PATIENT
  Age: 73 Year
  Sex: Female

DRUGS (1)
  1. NERVODERM [Suspect]
     Active Substance: LIDOCAINE
     Indication: NECK PAIN
     Route: 065

REACTIONS (5)
  - Application site vesicles [Unknown]
  - Application site erythema [Unknown]
  - Chest discomfort [Recovered/Resolved]
  - Pruritus [Unknown]
  - Dyspnoea [Recovered/Resolved]
